FAERS Safety Report 9441028 (Version 1)
Quarter: 2013Q3

REPORT INFORMATION
  Report Type: Spontaneous
  Country: US (occurrence: None)
  Receive Date: 20130801
  Receipt Date: 20130801
  Transmission Date: 20140515
  Serious: Yes (Other)
  Sender: FDA-Public Use
  Company Number: IND1-US-2013-0037

PATIENT
  Sex: 0

DRUGS (1)
  1. INDOMETHACIN [Suspect]
     Dosage: UNKNOWN

REACTIONS (1)
  - Intestinal perforation [None]
